FAERS Safety Report 4955740-2 (Version None)
Quarter: 2006Q1

REPORT INFORMATION
  Report Type: 
  Country: None (occurrence: None)
  Receive Date: 20060328
  Receipt Date: 20060130
  Transmission Date: 20060701
  Serious: Yes (Hospitalization)
  Sender: FDA-Public Use
  Company Number: FR-ROCHE-434362

PATIENT
  Age: 17 Year
  Sex: Female
  Weight: 52 kg

DRUGS (3)
  1. ROACCUTANE [Suspect]
     Indication: ACNE
     Dosage: THERAPY WITH ISOTRETINOIN FOR 3 WEEKS.
     Route: 065
     Dates: start: 20060104, end: 20060124
  2. CONTRACEPTIVE DRUG NOS [Concomitant]
     Route: 048
  3. CURACNE [Concomitant]
     Indication: ACNE

REACTIONS (5)
  - DIFFICULTY IN WALKING [None]
  - HEADACHE [None]
  - TINNITUS [None]
  - TORTICOLLIS [None]
  - VOMITING [None]
